FAERS Safety Report 12934384 (Version 4)
Quarter: 2017Q1

REPORT INFORMATION
  Report Type: Report from Study
  Country: None (occurrence: GR)
  Receive Date: 20161111
  Receipt Date: 20170117
  Transmission Date: 20170428
  Serious: Yes (Hospitalization)
  Sender: FDA-Public Use
  Company Number: GR-ABBVIE-16P-066-1776015-00

PATIENT
  Age: 70 Year
  Sex: Male
  Weight: 70 kg

DRUGS (13)
  1. DUODOPA [Suspect]
     Active Substance: CARBIDOPA\LEVODOPA
     Indication: PARKINSON^S DISEASE
     Dosage: MORNING DOSE: 13 ML; CONTINUOUS RATE: 5 ML/H; EXTRA DOSE: 2 ML
     Route: 050
     Dates: start: 20150608
  2. OXYGEN. [Concomitant]
     Active Substance: OXYGEN
     Indication: PRODUCT USED FOR UNKNOWN INDICATION
     Route: 055
  3. XEFO [Concomitant]
     Active Substance: LORNOXICAM
     Indication: PRODUCT USED FOR UNKNOWN INDICATION
     Dosage: 8 MG/100 ML N/S
     Route: 042
  4. CUBICIN [Concomitant]
     Active Substance: DAPTOMYCIN
     Indication: PRODUCT USED FOR UNKNOWN INDICATION
     Dosage: 500MG/100 ML N/S
     Route: 042
  5. CLEXANE [Concomitant]
     Active Substance: ENOXAPARIN SODIUM
     Indication: PRODUCT USED FOR UNKNOWN INDICATION
  6. ZYROLEN [Concomitant]
     Indication: PRODUCT USED FOR UNKNOWN INDICATION
     Route: 042
  7. FLORINEF ACETATE [Concomitant]
     Active Substance: FLUDROCORTISONE ACETATE
     Indication: PRODUCT USED FOR UNKNOWN INDICATION
     Route: 048
  8. APOTEL [Concomitant]
     Active Substance: ACETAMINOPHEN
     Indication: PRODUCT USED FOR UNKNOWN INDICATION
     Route: 042
  9. LONARID [Concomitant]
     Active Substance: ACETAMINOPHEN\AMOBARBITAL\CAFFEINE\CODEINE PHOSPHATE
     Indication: COUGH
     Route: 048
  10. SEROPRAM [Concomitant]
     Active Substance: CITALOPRAM HYDROBROMIDE
     Indication: DEPRESSION
     Route: 048
  11. PULMICORT TURBUHALER [Concomitant]
     Active Substance: BUDESONIDE
     Indication: PRODUCT USED FOR UNKNOWN INDICATION
     Route: 055
  12. DUODOPA [Suspect]
     Active Substance: CARBIDOPA\LEVODOPA
     Route: 050
  13. COLPOCIN [Concomitant]
     Indication: PRODUCT USED FOR UNKNOWN INDICATION
     Route: 042

REACTIONS (11)
  - Communication disorder [Recovering/Resolving]
  - Eye movement disorder [Recovering/Resolving]
  - Pleural effusion [Not Recovered/Not Resolved]
  - Dysphagia [Unknown]
  - Osteoarthritis [Recovering/Resolving]
  - Injury [Unknown]
  - Epilepsy [Recovering/Resolving]
  - Device occlusion [Recovered/Resolved]
  - Pneumonia [Not Recovered/Not Resolved]
  - Guillain-Barre syndrome [Unknown]
  - Hypotension [Recovered/Resolved]

NARRATIVE: CASE EVENT DATE: 2016
